FAERS Safety Report 9341200 (Version 2)
Quarter: 2013Q4

REPORT INFORMATION
  Report Type: Spontaneous
  Country: IN (occurrence: IN)
  Receive Date: 20130611
  Receipt Date: 20131030
  Transmission Date: 20140711
  Serious: Yes (Death, Other)
  Sender: FDA-Public Use
  Company Number: IN-MERCK-1306IND004036

PATIENT
  Age: 62 Year
  Sex: 0

DRUGS (1)
  1. JANUVIA [Suspect]
     Dosage: 1 DF, QD
     Route: 048

REACTIONS (4)
  - Death [Fatal]
  - Myocardial infarction [Unknown]
  - Renal failure [Unknown]
  - Dialysis [Unknown]
